FAERS Safety Report 8241936 (Version 7)
Quarter: 2014Q1

REPORT INFORMATION
  Report Type: Report from Study
  Country: JP (occurrence: JP)
  Receive Date: 20111111
  Receipt Date: 20140224
  Transmission Date: 20141002
  Serious: Yes (Other)
  Sender: FDA-Public Use
  Company Number: PHHY2010JP71688

PATIENT
  Age: 42 Year
  Sex: Female

DRUGS (17)
  1. AMN107 [Suspect]
     Indication: CHRONIC MYELOID LEUKAEMIA
     Dosage: 800 MG, DAILY
     Route: 048
     Dates: start: 20091211, end: 20091218
  2. AMN107 [Suspect]
     Dosage: 200 MG, DAILY
     Route: 048
     Dates: start: 20091229, end: 20100104
  3. AMN107 [Suspect]
     Dosage: 400 MG, DAILY
     Route: 048
     Dates: start: 20100105, end: 20100112
  4. AMN107 [Suspect]
     Dosage: 600 MG, DAILY
     Route: 048
     Dates: start: 20100113, end: 20100127
  5. AMN107 [Suspect]
     Dosage: 800 MG, DAILY
     Route: 048
     Dates: start: 20100128, end: 20100331
  6. AMN107 [Suspect]
     Dosage: 400 MG, DAILY
     Route: 048
     Dates: start: 20100414
  7. PURSENNID [Concomitant]
     Dosage: 24 MG
     Route: 048
     Dates: start: 20090528
  8. OMEPRAZON [Concomitant]
     Dosage: 20 MG
     Route: 048
     Dates: start: 20090528
  9. PREDNISOLONE [Concomitant]
     Indication: PROPHYLAXIS
     Dosage: 2 MG
     Route: 048
     Dates: start: 20101004
  10. PREDNISOLONE [Concomitant]
     Dosage: 1 MG
     Dates: end: 20121209
  11. ALLELOCK [Concomitant]
     Indication: PROPHYLAXIS
     Dosage: 5 MG
     Route: 048
     Dates: start: 20101004
  12. OMEPRAL [Concomitant]
     Indication: PROPHYLAXIS
     Dosage: 20 MG
     Route: 048
     Dates: start: 20101004
  13. LASIX [Concomitant]
     Indication: PROPHYLAXIS
     Dosage: 10 MG
     Route: 048
     Dates: start: 20101004
  14. FERROMIA [Concomitant]
     Dosage: 50 MG
     Route: 048
     Dates: start: 20101004, end: 20121209
  15. MAGLAX [Concomitant]
     Dosage: 660 MG
     Route: 048
     Dates: start: 20101004
  16. SENNOSIDE [Concomitant]
     Dosage: 36 MG
     Route: 048
     Dates: start: 20101004
  17. FUROSEMIDE [Concomitant]

REACTIONS (7)
  - Jaundice [Not Recovered/Not Resolved]
  - Hepatic function abnormal [Recovered/Resolved]
  - Aspartate aminotransferase increased [Recovered/Resolved]
  - Alanine aminotransferase increased [Recovered/Resolved]
  - Blood bilirubin increased [Recovered/Resolved]
  - Nail discolouration [Unknown]
  - Nail disorder [Unknown]
